FAERS Safety Report 6707061-5 (Version None)
Quarter: 2010Q2

REPORT INFORMATION
  Report Type: 
  Country: None (occurrence: None)
  Receive Date: 20100503
  Receipt Date: 20100421
  Transmission Date: 20101027
  Serious: Yes (Death, Hospitalization)
  Sender: FDA-Public Use
  Company Number: US-WATSON-2010-04240

PATIENT
  Age: 38 Year
  Sex: Female

DRUGS (1)
  1. FENTANYL-100 [Suspect]
     Indication: INTENTIONAL DRUG MISUSE
     Dosage: 1 PATCH FOUND IN HER MOUTH
     Route: 002
     Dates: start: 20100331, end: 20100331

REACTIONS (2)
  - CARDIAC ARREST [None]
  - INTENTIONAL DRUG MISUSE [None]
